FAERS Safety Report 10538858 (Version 1)
Quarter: 2014Q4

REPORT INFORMATION
  Report Type: Spontaneous
  Country: US (occurrence: US)
  Receive Date: 20141023
  Receipt Date: 20141023
  Transmission Date: 20150529
  Serious: Yes (Other)
  Sender: FDA-Public Use
  Company Number: US-TEVA-516355USA

PATIENT
  Age: 57 Year
  Sex: Female

DRUGS (1)
  1. COPAXONE [Suspect]
     Active Substance: GLATIRAMER ACETATE
     Indication: MULTIPLE SCLEROSIS
     Dates: start: 20130711

REACTIONS (9)
  - Multiple sclerosis relapse [Recovering/Resolving]
  - Back pain [Recovering/Resolving]
  - Limb discomfort [Recovering/Resolving]
  - Balance disorder [Recovering/Resolving]
  - Musculoskeletal stiffness [Recovering/Resolving]
  - Muscle spasticity [Recovering/Resolving]
  - Gait disturbance [Recovering/Resolving]
  - Nuclear magnetic resonance imaging abnormal [Unknown]
  - Confusional state [Recovering/Resolving]

NARRATIVE: CASE EVENT DATE: 201409
